FAERS Safety Report 9652544 (Version 3)
Quarter: 2016Q2

REPORT INFORMATION
  Report Type: Spontaneous
  Country: US (occurrence: US)
  Receive Date: 20131029
  Receipt Date: 20160530
  Transmission Date: 20160815
  Serious: Yes (Other)
  Sender: FDA-Public Use
  Company Number: US-JNJFOC-20131011898

PATIENT
  Sex: Male

DRUGS (1)
  1. DURAGESIC [Suspect]
     Active Substance: FENTANYL
     Indication: PAIN
     Dosage: 100 +75 UG/HR PATCHES
     Route: 062

REACTIONS (3)
  - Drug dose omission [Unknown]
  - Neuromyopathy [Not Recovered/Not Resolved]
  - Product quality issue [Unknown]
